FAERS Safety Report 22592772 (Version 1)
Quarter: 2023Q2

REPORT INFORMATION
  Report Type: Spontaneous
  Country: US (occurrence: US)
  Receive Date: 20230613
  Receipt Date: 20230613
  Transmission Date: 20230721
  Serious: Yes (Hospitalization, Other)
  Sender: FDA-Public Use
  Company Number: US-MLMSERVICE-20230524-4300744-1

PATIENT
  Age: 60 Year
  Sex: Male

DRUGS (1)
  1. PREDNISONE [Suspect]
     Active Substance: PREDNISONE
     Indication: Polymyalgia rheumatica
     Route: 065

REACTIONS (4)
  - Spinal stenosis [Recovering/Resolving]
  - Extradural abscess [Recovering/Resolving]
  - Listeriosis [Recovering/Resolving]
  - Osteomyelitis [Recovering/Resolving]
